FAERS Safety Report 18789382 (Version 1)
Quarter: 2021Q1

REPORT INFORMATION
  Report Type: Spontaneous
  Country: US (occurrence: US)
  Receive Date: 20210125
  Receipt Date: 20210125
  Transmission Date: 20210419
  Serious: No
  Sender: FDA-Public Use
  Company Number: US-ACORDA-ACO_166215_2020

PATIENT
  Age: 18 Year
  Sex: Female

DRUGS (4)
  1. AMPYRA [Suspect]
     Active Substance: DALFAMPRIDINE
     Dosage: 7.5 MILLIGRAM, QAM
     Route: 065
     Dates: start: 201904
  2. AMPYRA [Suspect]
     Active Substance: DALFAMPRIDINE
     Indication: GENE MUTATION
     Dosage: 2.5 MILLIGRAM, TID
     Route: 065
     Dates: start: 201803
  3. AMPYRA [Suspect]
     Active Substance: DALFAMPRIDINE
     Dosage: 5 MILLIGRAM, HS
     Route: 065
     Dates: start: 201904
  4. AMPYRA [Suspect]
     Active Substance: DALFAMPRIDINE
     Dosage: 5 MILLIGRAM, TID
     Route: 065

REACTIONS (7)
  - Off label use [Unknown]
  - Wrong dose [Unknown]
  - Insomnia [Recovering/Resolving]
  - Drug tolerance [Unknown]
  - Therapeutic response unexpected [Unknown]
  - Anxiety [Recovering/Resolving]
  - Condition aggravated [Recovering/Resolving]

NARRATIVE: CASE EVENT DATE: 201904
